FAERS Safety Report 19068729 (Version 1)
Quarter: 2021Q1

REPORT INFORMATION
  Report Type: Spontaneous
  Country: US (occurrence: US)
  Receive Date: 20210329
  Receipt Date: 20210329
  Transmission Date: 20210420
  Serious: Yes (Hospitalization)
  Sender: FDA-Public Use
  Company Number: None

PATIENT
  Age: 51 Year
  Sex: Male

DRUGS (1)
  1. SOFOS/VELPAT 400MG?100MG TAB [Suspect]
     Active Substance: SOFOSBUVIR\VELPATASVIR
     Indication: CHRONIC HEPATITIS C
     Dosage: ?          OTHER DOSE:1 TAB;OTHER FREQUENCY:QD X 12 WK;?
     Route: 048
     Dates: start: 20210203

REACTIONS (1)
  - Somnolence [None]

NARRATIVE: CASE EVENT DATE: 20210325
